FAERS Safety Report 16113158 (Version 1)
Quarter: 2019Q1

REPORT INFORMATION
  Report Type: Report from Study
  Country: IT (occurrence: IT)
  Receive Date: 20190325
  Receipt Date: 20190325
  Transmission Date: 20190418
  Serious: Yes (Hospitalization)
  Sender: FDA-Public Use
  Company Number: IT-PFIZER INC-2019122023

PATIENT
  Age: 11 Year
  Sex: Female
  Weight: 60 kg

DRUGS (13)
  1. METHOTREXATE SODIUM. [Suspect]
     Active Substance: METHOTREXATE SODIUM
     Indication: ACUTE LYMPHOCYTIC LEUKAEMIA
     Dosage: 12 MG, CYCLIC
     Route: 042
     Dates: start: 20180910, end: 20180924
  2. VINCRISTINE SULFATE. [Suspect]
     Active Substance: VINCRISTINE SULFATE
     Indication: ACUTE LYMPHOCYTIC LEUKAEMIA
     Dosage: 2 MG, CYCLIC
     Route: 042
     Dates: start: 20180917, end: 20181001
  3. LASIX [Concomitant]
     Active Substance: FUROSEMIDE
     Dosage: 15 MG, UNK
     Route: 042
  4. PEGASPARGASE [Suspect]
     Active Substance: PEGASPARGASE
     Indication: ACUTE LYMPHOCYTIC LEUKAEMIA
     Dosage: 3750 KIU, CYCLIC
     Route: 042
     Dates: start: 20180920, end: 20181004
  5. ACICLOVIR [Concomitant]
     Active Substance: ACYCLOVIR
     Dosage: 1200 MG, UNK
  6. DECADRON [Concomitant]
     Active Substance: DEXAMETHASONE
     Dosage: 15.4 MG, UNK
     Route: 048
  7. MYCOSTATIN [Concomitant]
     Active Substance: NYSTATIN
     Dosage: 15 ML, UNK
     Route: 048
  8. BACTRIM [Concomitant]
     Active Substance: SULFAMETHOXAZOLE\TRIMETHOPRIM
     Dosage: 2 DF, UNK
     Route: 048
  9. DEURSIL [Concomitant]
     Active Substance: URSODIOL
     Dosage: 600 MG, UNK
  10. MAALOX [ALGELDRATE;MAGNESIUM HYDROXIDE] [Concomitant]
     Active Substance: ALGELDRATE\MAGNESIUM HYDROXIDE
     Dosage: 30 ML, UNK
     Route: 048
  11. ANTRA [OMEPRAZOLE MAGNESIUM] [Concomitant]
     Dosage: 40 MG, UNK
     Route: 042
  12. DAUNOBLASTINA [Suspect]
     Active Substance: DAUNORUBICIN
     Indication: ACUTE LYMPHOCYTIC LEUKAEMIA
     Dosage: 46.2 MG, CYCLIC
     Route: 042
     Dates: start: 20180917, end: 20181001
  13. CIPROXIN [CIPROFLOXACIN HYDROCHLORIDE] [Concomitant]
     Active Substance: CIPROFLOXACIN HYDROCHLORIDE
     Dosage: 1000 MG, UNK

REACTIONS (2)
  - Neuropathy peripheral [Not Recovered/Not Resolved]
  - Oropharyngeal pain [Not Recovered/Not Resolved]

NARRATIVE: CASE EVENT DATE: 20181006
